FAERS Safety Report 16098174 (Version 5)
Quarter: 2019Q2

REPORT INFORMATION
  Report Type: Report from Study
  Country: US (occurrence: US)
  Receive Date: 20190320
  Receipt Date: 20190606
  Transmission Date: 20190711
  Serious: Yes (Hospitalization, Other)
  Sender: FDA-Public Use
  Company Number: US-BIOGEN-2019BI00712134

PATIENT
  Age: 50 Year
  Sex: Female

DRUGS (3)
  1. XANAX [Concomitant]
     Active Substance: ALPRAZOLAM
     Indication: ANXIETY
     Route: 065
     Dates: start: 201609
  2. AVONEX [Suspect]
     Active Substance: INTERFERON BETA-1A
     Indication: MULTIPLE SCLEROSIS
     Route: 030
     Dates: start: 201707
  3. AVONEX [Suspect]
     Active Substance: INTERFERON BETA-1A
     Route: 030
     Dates: start: 201709

REACTIONS (14)
  - Multiple sclerosis [Not Recovered/Not Resolved]
  - Oral discomfort [Not Recovered/Not Resolved]
  - Neck pain [Recovered/Resolved]
  - Blindness unilateral [Not Recovered/Not Resolved]
  - Heart rate decreased [Recovered/Resolved]
  - Hemiplegia [Recovered/Resolved]
  - Tooth infection [Recovered/Resolved]
  - Uterine leiomyoma [Not Recovered/Not Resolved]
  - Paraesthesia [Recovered/Resolved]
  - Multiple sclerosis relapse [Recovered/Resolved]
  - Oral herpes [Not Recovered/Not Resolved]
  - Skin papilloma [Not Recovered/Not Resolved]
  - Foot deformity [Not Recovered/Not Resolved]
  - Suicidal ideation [Recovered/Resolved]

NARRATIVE: CASE EVENT DATE: 201808
